FAERS Safety Report 23705402 (Version 2)
Quarter: 2024Q2

REPORT INFORMATION
  Report Type: Spontaneous
  Country: US (occurrence: US)
  Receive Date: 20240404
  Receipt Date: 20240521
  Transmission Date: 20240716
  Serious: No
  Sender: FDA-Public Use
  Company Number: US-LEO Pharma-369124

PATIENT
  Age: 21 Year
  Sex: Female

DRUGS (2)
  1. ADBRY [Suspect]
     Active Substance: TRALOKINUMAB-LDRM
     Indication: Dermatitis atopic
     Dosage: 4 SYRINGES UNDER THE SKIN ON DAY 1, THEN AT 2 SYRINGES EVERY TWO 14 DAYS THEREAFTER; TREATMENT REPOR
     Route: 058
     Dates: start: 202403
  2. ADBRY [Suspect]
     Active Substance: TRALOKINUMAB-LDRM
     Indication: Dermatitis atopic
     Dosage: THEN AT 2 SYRINGES EVERY TWO 14 DAYS
     Route: 058
     Dates: end: 20240429

REACTIONS (2)
  - Erythema [Not Recovered/Not Resolved]
  - Rash [Not Recovered/Not Resolved]
